FAERS Safety Report 8572119-5 (Version None)
Quarter: 2012Q3

REPORT INFORMATION
  Report Type: 
  Country: None (occurrence: None)
  Receive Date: 20120806
  Receipt Date: 20120731
  Transmission Date: 20120928
  Serious: Yes (Other)
  Sender: FDA-Public Use
  Company Number: PHHO2012CA011233

PATIENT
  Sex: Male
  Weight: 86 kg

DRUGS (4)
  1. TAMSULOSIN HCL [Concomitant]
     Indication: BENIGN PROSTATIC HYPERPLASIA
     Dosage: 0.4 MG, UNK
     Route: 065
     Dates: start: 20060101
  2. SOLUTRICINE [Concomitant]
     Indication: NEUROGENIC BLADDER
     Dosage: 5 MG, UNK
     Route: 065
     Dates: start: 20110623
  3. GILENYA [Suspect]
     Indication: MULTIPLE SCLEROSIS RELAPSE
     Dosage: 0.5 MG, QD
     Route: 048
     Dates: start: 20110418
  4. VALSARTAN/HYDROCHLOORTHIAZIDE [Concomitant]
     Indication: HYPERTENSION
     Dosage: 160/145 MG
     Dates: start: 20070330

REACTIONS (1)
  - RENAL NEOPLASM [None]
